FAERS Safety Report 16609540 (Version 1)
Quarter: 2019Q3

REPORT INFORMATION
  Report Type: Spontaneous
  Country: US (occurrence: US)
  Receive Date: 20190607
  Receipt Date: 20190607
  Transmission Date: 20191004
  Serious: Yes (Other)
  Sender: FDA-Public Use
  Company Number: None

PATIENT
  Age: 70 Year
  Sex: Male
  Weight: 92.99 kg

DRUGS (1)
  1. LOSARTAN POTASSIUM. [Suspect]
     Active Substance: LOSARTAN POTASSIUM
     Dosage: ?          OTHER DOSE:1 1/2;?

REACTIONS (5)
  - Eating disorder [None]
  - Hypersomnia [None]
  - Fatigue [None]
  - Skin discolouration [None]
  - Cough [None]
